FAERS Safety Report 25777197 (Version 1)
Quarter: 2025Q3

REPORT INFORMATION
  Report Type: Spontaneous
  Country: EU (occurrence: EU)
  Receive Date: 20250909
  Receipt Date: 20250909
  Transmission Date: 20251020
  Serious: Yes (Hospitalization, Other)
  Sender: DR REDDYS
  Company Number: EU-GERMAN-POL/2025/05/007117

PATIENT
  Age: 41 Year
  Sex: Male

DRUGS (13)
  1. PREGABALIN [Suspect]
     Active Substance: PREGABALIN
     Indication: Anxiety
  2. PREGABALIN [Suspect]
     Active Substance: PREGABALIN
     Indication: Withdrawal syndrome
  3. PREGABALIN [Suspect]
     Active Substance: PREGABALIN
     Indication: Epilepsy
  4. PREGABALIN [Suspect]
     Active Substance: PREGABALIN
     Indication: Psychiatric symptom
  5. HALOPERIDOL [Suspect]
     Active Substance: HALOPERIDOL
     Indication: Withdrawal syndrome
  6. HALOPERIDOL [Suspect]
     Active Substance: HALOPERIDOL
     Indication: Psychotic symptom
  7. HYDROXYZINE [Suspect]
     Active Substance: HYDROXYZINE HYDROCHLORIDE
     Indication: Epilepsy
  8. HYDROXYZINE [Suspect]
     Active Substance: HYDROXYZINE HYDROCHLORIDE
     Indication: Psychiatric symptom
  9. LAMOTRIGINE [Suspect]
     Active Substance: LAMOTRIGINE
     Indication: Withdrawal syndrome
  10. QUETIAPINE [Suspect]
     Active Substance: QUETIAPINE
     Indication: Epilepsy
  11. VALPROATE SODIUM [Suspect]
     Active Substance: VALPROATE SODIUM
     Indication: Epilepsy
     Dosage: 1000 MG OF SODIUM VALPROATE + VALPROIC ACID
  12. VALPROATE SODIUM [Suspect]
     Active Substance: VALPROATE SODIUM
     Indication: Withdrawal syndrome
  13. LAMOTRIGINE [Concomitant]
     Active Substance: LAMOTRIGINE
     Indication: Epilepsy

REACTIONS (9)
  - Condition aggravated [Recovering/Resolving]
  - Multiple-drug resistance [Unknown]
  - Psychotic symptom [Recovered/Resolved]
  - Apathy [Recovering/Resolving]
  - Depressed mood [Recovering/Resolving]
  - Anxiety [Unknown]
  - Drug ineffective [Recovering/Resolving]
  - Overdose [Unknown]
  - Negative thoughts [Recovering/Resolving]
